FAERS Safety Report 20678777 (Version 2)
Quarter: 2022Q2

REPORT INFORMATION
  Report Type: Spontaneous
  Country: US (occurrence: None)
  Receive Date: 20220406
  Receipt Date: 20220519
  Transmission Date: 20220720
  Serious: Yes (Other)
  Sender: FDA-Public Use
  Company Number: 2022A132305

PATIENT
  Age: 39 Year
  Sex: Male
  Weight: 107.5 kg

DRUGS (2)
  1. EVUSHELD [Suspect]
     Active Substance: CILGAVIMAB\TIXAGEVIMAB
     Indication: COVID-19 prophylaxis
     Dosage: 300.0MG UNKNOWN
     Route: 030
     Dates: start: 20220328
  2. EVUSHELD [Suspect]
     Active Substance: CILGAVIMAB\TIXAGEVIMAB
     Indication: COVID-19 prophylaxis
     Dosage: 300.0MG UNKNOWN
     Route: 030
     Dates: start: 20220121

REACTIONS (2)
  - Nasopharyngitis [Unknown]
  - Abdominal pain lower [Unknown]
